FAERS Safety Report 17693813 (Version 1)
Quarter: 2020Q2

REPORT INFORMATION
  Report Type: Spontaneous
  Country: CZ (occurrence: CZ)
  Receive Date: 20200422
  Receipt Date: 20200422
  Transmission Date: 20200714
  Serious: Yes (Other)
  Sender: FDA-Public Use
  Company Number: NVSC2020CZ007327

PATIENT
  Age: 56 Year
  Sex: Male

DRUGS (3)
  1. METHOTREXATE. [Suspect]
     Active Substance: METHOTREXATE
     Dosage: UNK
     Route: 065
  2. INFLIXIMAB [Suspect]
     Active Substance: INFLIXIMAB
     Indication: ANKYLOSING SPONDYLITIS
     Dosage: 5 MG/KG
     Route: 065
  3. METHOTREXATE. [Suspect]
     Active Substance: METHOTREXATE
     Indication: ANKYLOSING SPONDYLITIS
     Dosage: 10 MG(1 ? ONCE A WEEK)
     Route: 065
     Dates: start: 201410, end: 201507

REACTIONS (3)
  - Therapeutic product effect decreased [Unknown]
  - Drug ineffective for unapproved indication [Unknown]
  - Polyarthritis [Unknown]
